FAERS Safety Report 9912969 (Version 2)
Quarter: 2014Q2

REPORT INFORMATION
  Report Type: Spontaneous
  Country: US (occurrence: US)
  Receive Date: 20140220
  Receipt Date: 20140404
  Transmission Date: 20141212
  Serious: No
  Sender: FDA-Public Use
  Company Number: US-PFIZER INC-2014047276

PATIENT
  Age: 10 Year
  Sex: Female

DRUGS (6)
  1. QUILLIVANT XR [Suspect]
     Indication: ATTENTION DEFICIT/HYPERACTIVITY DISORDER
     Dosage: 12 ML, 1X/DAY (IN THE MORNING)
     Route: 048
     Dates: start: 20130628
  2. INTUNIV [Concomitant]
     Indication: ATTENTION DEFICIT/HYPERACTIVITY DISORDER
     Dosage: 3 MG, 1X/DAY
     Route: 048
     Dates: start: 2012
  3. INVEGA [Concomitant]
     Indication: ATTENTION DEFICIT/HYPERACTIVITY DISORDER
     Dosage: 6MG (TAKING TWO DOSES OF 3MG) DAILY
     Route: 048
     Dates: start: 2012
  4. INVEGA [Concomitant]
     Indication: AFFECTIVE DISORDER
     Dosage: 3 MG, DAILY (1MG IN THE MORNING AND 2MG AT 5PM)
     Route: 048
  5. TRAZODONE [Concomitant]
     Indication: SLEEP DISORDER
     Dosage: UNK
     Dates: start: 2012
  6. TRAZODONE [Concomitant]
     Dosage: 100 MG, 1X/DAY (EVERY NIGHT AT BEDTIME)
     Route: 048

REACTIONS (1)
  - Epistaxis [Unknown]
